FAERS Safety Report 11082998 (Version 1)
Quarter: 2015Q2

REPORT INFORMATION
  Report Type: Spontaneous
  Country: US (occurrence: US)
  Receive Date: 20150501
  Receipt Date: 20150501
  Transmission Date: 20150821
  Serious: No
  Sender: FDA-Public Use
  Company Number: US-ABBVIE-14P-163-1314509-00

PATIENT
  Age: 50 Year
  Sex: Male
  Weight: 131.66 kg

DRUGS (6)
  1. LISINOPRIL. [Concomitant]
     Active Substance: LISINOPRIL
     Indication: HYPERTENSION
     Route: 065
  2. HYDROCODONE [Concomitant]
     Active Substance: HYDROCODONE
     Indication: PAIN
     Route: 065
  3. LORAZEPAM. [Concomitant]
     Active Substance: LORAZEPAM
     Indication: ANXIETY
     Route: 065
  4. TRAMADOL [Concomitant]
     Active Substance: TRAMADOL
     Indication: PAIN
     Route: 065
  5. ANDROGEL [Suspect]
     Active Substance: TESTOSTERONE
     Indication: BLOOD TESTOSTERONE DECREASED
     Dosage: TWO PUMPS (ONE PUMP PER SHOULDER)
     Route: 061
     Dates: start: 20141111, end: 20141114
  6. POTASSIUM CHLORIDE. [Concomitant]
     Active Substance: POTASSIUM CHLORIDE
     Indication: PRODUCT USED FOR UNKNOWN INDICATION
     Route: 065

REACTIONS (5)
  - Headache [Recovered/Resolved]
  - Pain [Recovered/Resolved]
  - Musculoskeletal stiffness [Recovered/Resolved]
  - Discomfort [Recovered/Resolved]
  - Peripheral swelling [Recovered/Resolved]

NARRATIVE: CASE EVENT DATE: 20141111
